FAERS Safety Report 8013265-4 (Version None)
Quarter: 2011Q4

REPORT INFORMATION
  Report Type: 
  Country: None (occurrence: None)
  Receive Date: 20111229
  Receipt Date: 20111229
  Transmission Date: 20120403
  Serious: No
  Sender: FDA-Public Use
  Company Number: None

PATIENT
  Age: 67 Year
  Sex: Female
  Weight: 63.049 kg

DRUGS (1)
  1. BYSTOLIC [Suspect]

REACTIONS (7)
  - IRRITABILITY [None]
  - DYSPNOEA [None]
  - CHILLS [None]
  - REFUSAL OF TREATMENT BY PATIENT [None]
  - FATIGUE [None]
  - DIZZINESS [None]
  - CHEST PAIN [None]
